FAERS Safety Report 5384040-4 (Version None)
Quarter: 2007Q3

REPORT INFORMATION
  Report Type: 
  Country: None (occurrence: None)
  Receive Date: 20070709
  Receipt Date: 20070302
  Transmission Date: 20080115
  Serious: Yes (Hospitalization)
  Sender: FDA-Public Use
  Company Number: US-2007-007664

PATIENT

DRUGS (1)
  1. CAMPATH [Suspect]
     Dosage: 3 MG, 1 DOSE, SUBCUTANEOUS
     Route: 058
     Dates: start: 20070228, end: 20070228

REACTIONS (1)
  - BRONCHOSPASM [None]
